FAERS Safety Report 13532871 (Version 1)
Quarter: 2017Q2

REPORT INFORMATION
  Report Type: Spontaneous
  Country: ES (occurrence: ES)
  Receive Date: 20170510
  Receipt Date: 20170510
  Transmission Date: 20170830
  Serious: Yes (Hospitalization)
  Sender: FDA-Public Use
  Company Number: ES-ASTRAZENECA-2017SE47325

PATIENT
  Age: 82 Year

DRUGS (6)
  1. FUROSEMIDE. [Concomitant]
     Active Substance: FUROSEMIDE
  2. CEFIXIME. [Concomitant]
     Active Substance: CEFIXIME
  3. TICAGRELOR [Suspect]
     Active Substance: TICAGRELOR
     Indication: TRANSCATHETER AORTIC VALVE IMPLANTATION
     Route: 048
     Dates: start: 20170403
  4. METFORMIN [Concomitant]
     Active Substance: METFORMIN HYDROCHLORIDE
  5. OMEPRAZOL [Concomitant]
     Active Substance: OMEPRAZOLE
  6. CANDESARTAN CILEXETIL. [Concomitant]
     Active Substance: CANDESARTAN CILEXETIL

REACTIONS (1)
  - Urinary tract infection [Unknown]

NARRATIVE: CASE EVENT DATE: 20170427
